FAERS Safety Report 8795943 (Version 2)
Quarter: 2012Q4

REPORT INFORMATION
  Report Type: 
  Country: AU (occurrence: AU)
  Receive Date: 20120920
  Receipt Date: 20121024
  Transmission Date: 20130627
  Serious: Yes (Other)
  Sender: FDA-Public Use
  Company Number: AU-PFIZER INC-2012202769

PATIENT
  Age: 66 Year
  Sex: Female
  Weight: 86 kg

DRUGS (2)
  1. PRISTIQ [Suspect]
     Indication: DEPRESSION
     Dosage: 50 mg, UNK
     Route: 048
     Dates: start: 20120605, end: 20120817
  2. CIPRAMIL [Suspect]
     Indication: DEPRESSION
     Dosage: 20 mg, UNK
     Route: 048
     Dates: start: 20120819, end: 20120820

REACTIONS (11)
  - Serotonin syndrome [Recovered/Resolved]
  - Blood pressure increased [Recovered/Resolved]
  - Nausea [Recovered/Resolved]
  - Dizziness [Recovered/Resolved]
  - Malaise [Recovered/Resolved]
  - Vomiting [Recovered/Resolved]
  - Chills [Recovered/Resolved]
  - Crying [Recovered/Resolved]
  - Hyperreflexia [Recovered/Resolved]
  - Depressed mood [Unknown]
  - Arthralgia [Unknown]
